FAERS Safety Report 7885094-3 (Version None)
Quarter: 2011Q4

REPORT INFORMATION
  Report Type: 
  Country: None (occurrence: None)
  Receive Date: 20111102
  Receipt Date: 20100908
  Transmission Date: 20120403
  Serious: No
  Sender: FDA-Public Use
  Company Number: US-BAYER-201033332NA

PATIENT
  Age: 38 Year
  Sex: Male

DRUGS (7)
  1. LEVITRA [Suspect]
     Indication: ERECTILE DYSFUNCTION
     Dosage: 20 MG, PRN
     Route: 048
     Dates: start: 20100901
  2. DEXTROAMPHETAMINE [Concomitant]
  3. ALPRAZOLAM [Concomitant]
  4. WARFARIN SODIUM [Concomitant]
  5. LUNESTA [Concomitant]
  6. LISINOPRIL [Concomitant]
  7. LEXAPRO [Concomitant]

REACTIONS (4)
  - NARCOLEPSY [None]
  - LETHARGY [None]
  - DAYDREAMING [None]
  - ENERGY INCREASED [None]
